FAERS Safety Report 13751168 (Version 3)
Quarter: 2025Q1

REPORT INFORMATION
  Report Type: Spontaneous
  Country: GB (occurrence: GB)
  Receive Date: 20170713
  Receipt Date: 20250224
  Transmission Date: 20250408
  Serious: Yes (Life-Threatening, Hospitalization, Other)
  Sender: FERRING
  Company Number: None

PATIENT

DRUGS (6)
  1. ZOMACTON [Suspect]
     Active Substance: SOMATROPIN
     Indication: Turner^s syndrome
     Dosage: 1 TIME DAILY
     Route: 058
     Dates: start: 20170217, end: 20170609
  2. ACETAMINOPHEN [Concomitant]
     Active Substance: ACETAMINOPHEN
     Indication: Product used for unknown indication
  3. ESTRADIOL [Concomitant]
     Active Substance: ESTRADIOL
     Indication: Primary hypogonadism
     Dosage: 6.25 ?G, DAILY
     Route: 062
     Dates: start: 20170208
  4. IBUPROFEN [Concomitant]
     Active Substance: IBUPROFEN
     Indication: Product used for unknown indication
     Route: 065
  5. CODEINE [Concomitant]
     Active Substance: CODEINE
     Indication: Product used for unknown indication
     Route: 065
  6. OESTRADIOL                         /00045401/ [Concomitant]
     Indication: Product used for unknown indication

REACTIONS (10)
  - Alveolar rhabdomyosarcoma [Unknown]
  - Lymphadenopathy [Unknown]
  - Urinary retention [Unknown]
  - Pain in extremity [Unknown]
  - Spinal cord compression [Unknown]
  - Pleural disorder [Unknown]
  - Gait disturbance [Unknown]
  - Gait inability [Unknown]
  - Bone marrow infiltration [Unknown]
  - Mass [Unknown]

NARRATIVE: CASE EVENT DATE: 20170201
